FAERS Safety Report 23678547 (Version 1)
Quarter: 2024Q1

REPORT INFORMATION
  Report Type: Spontaneous
  Country: US (occurrence: None)
  Receive Date: 20240326
  Receipt Date: 20240326
  Transmission Date: 20240410
  Serious: Yes (Disabling, Other)
  Sender: FDA-Public Use
  Company Number: None

PATIENT
  Age: 72 Year
  Sex: Female
  Weight: 68.04 kg

DRUGS (2)
  1. FLUTICASONE PROPIONATE [Suspect]
     Active Substance: FLUTICASONE PROPIONATE
     Indication: Viral infection
     Dosage: FREQUENCY : TWICE A DAY;?
     Route: 055
     Dates: start: 20240131, end: 20240220
  2. FLUTICASONE PROPIONATE [Suspect]
     Active Substance: FLUTICASONE PROPIONATE
     Indication: Upper respiratory tract infection

REACTIONS (10)
  - Upper respiratory tract infection [None]
  - Dyspnoea [None]
  - Dizziness [None]
  - Respiratory rate increased [None]
  - Therapy non-responder [None]
  - Productive cough [None]
  - Fatigue [None]
  - Bordetella test positive [None]
  - Pertussis [None]
  - Pneumonia mycoplasmal [None]

NARRATIVE: CASE EVENT DATE: 20240209
